FAERS Safety Report 4656614-7 (Version None)
Quarter: 2005Q2

REPORT INFORMATION
  Report Type: 
  Country: None (occurrence: None)
  Receive Date: 20050509
  Receipt Date: 20050217
  Transmission Date: 20051028
  Serious: Yes (Other)
  Sender: FDA-Public Use
  Company Number: 2005UW04321

PATIENT
  Age: 45 Year
  Sex: Female

DRUGS (9)
  1. SEROQUEL [Suspect]
     Route: 048
  2. SEROQUEL [Suspect]
     Route: 048
     Dates: start: 20041101
  3. EFFEXOR XR [Concomitant]
     Route: 048
  4. EFFEXOR XR [Concomitant]
     Route: 048
  5. EFFEXOR XR [Concomitant]
     Route: 048
  6. LAMOTRIGINE [Concomitant]
     Route: 048
  7. LAMOTRIGINE [Concomitant]
     Route: 048
  8. ATIVAN [Concomitant]
     Route: 048
  9. NOZINAN [Concomitant]
     Route: 048

REACTIONS (19)
  - ACTIVITIES OF DAILY LIVING IMPAIRED [None]
  - ASTHENIA [None]
  - BALANCE DISORDER [None]
  - BRUXISM [None]
  - CONFUSIONAL STATE [None]
  - COORDINATION ABNORMAL [None]
  - DEPRESSION [None]
  - DIFFICULTY IN WALKING [None]
  - DISTURBANCE IN ATTENTION [None]
  - DYSKINESIA [None]
  - DYSSTASIA [None]
  - HYPOKINESIA [None]
  - IMPAIRED WORK ABILITY [None]
  - MEMORY IMPAIRMENT [None]
  - MENTAL DISORDER [None]
  - MOTOR DYSFUNCTION [None]
  - MUSCLE TWITCHING [None]
  - MUSCULOSKELETAL STIFFNESS [None]
  - PARKINSONISM [None]
